FAERS Safety Report 19136158 (Version 1)
Quarter: 2021Q2

REPORT INFORMATION
  Report Type: Spontaneous
  Country: MY (occurrence: MY)
  Receive Date: 20210414
  Receipt Date: 20210414
  Transmission Date: 20210717
  Serious: Yes (Other)
  Sender: FDA-Public Use
  Company Number: MY-B.I. PHARMACEUTICALS,INC./RIDGEFIELD-2021-BI-096105

PATIENT
  Age: 65 Year
  Sex: Male

DRUGS (2)
  1. OFEV [Suspect]
     Active Substance: NINTEDANIB
     Indication: PULMONARY FIBROSIS
     Dosage: 150MG BD
     Dates: start: 202009
  2. OFEV [Suspect]
     Active Substance: NINTEDANIB
     Indication: EMPHYSEMA

REACTIONS (1)
  - Forced vital capacity decreased [Unknown]
